FAERS Safety Report 7931572-8 (Version None)
Quarter: 2011Q4

REPORT INFORMATION
  Report Type: 
  Country: None (occurrence: None)
  Receive Date: 20111121
  Receipt Date: 20111121
  Transmission Date: 20120403
  Serious: Yes (Hospitalization)
  Sender: FDA-Public Use
  Company Number: None

PATIENT
  Sex: Female
  Weight: 54.431 kg

DRUGS (1)
  1. AMANTADINE HCL [Suspect]
     Indication: CONCUSSION
     Dosage: 100 MGS
     Route: 048
     Dates: start: 20111015, end: 20111031

REACTIONS (3)
  - SUICIDE ATTEMPT [None]
  - INTENTIONAL SELF-INJURY [None]
  - AGGRESSION [None]
